FAERS Safety Report 15057362 (Version 1)
Quarter: 2018Q2

REPORT INFORMATION
  Report Type: Spontaneous
  Country: DE (occurrence: DE)
  Receive Date: 20180625
  Receipt Date: 20180625
  Transmission Date: 20180711
  Serious: Yes (Hospitalization)
  Sender: FDA-Public Use
  Company Number: DE-UCBSA-2018026866

PATIENT
  Age: 77 Year
  Sex: Female

DRUGS (1)
  1. VIMPAT [Suspect]
     Active Substance: LACOSAMIDE
     Indication: PRODUCT USED FOR UNKNOWN INDICATION
     Dosage: 50 MG-0-100 MG, 2X/DAY (BID)
     Dates: end: 2018

REACTIONS (4)
  - Platelet count decreased [Unknown]
  - Pelvic fracture [Unknown]
  - Intentional product misuse [Unknown]
  - Seizure [Recovered/Resolved]

NARRATIVE: CASE EVENT DATE: 201805
